FAERS Safety Report 22184518 (Version 1)
Quarter: 2023Q2

REPORT INFORMATION
  Report Type: Spontaneous
  Country: US (occurrence: US)
  Receive Date: 20230407
  Receipt Date: 20230407
  Transmission Date: 20230722
  Serious: Yes (Other)
  Sender: FDA-Public Use
  Company Number: US-NOVOPROD-1047023

PATIENT
  Sex: Female

DRUGS (2)
  1. OZEMPIC [Suspect]
     Active Substance: SEMAGLUTIDE
     Indication: Diabetes mellitus
     Dosage: UNK
     Route: 058
  2. OZEMPIC [Suspect]
     Active Substance: SEMAGLUTIDE
     Dosage: 1 MG

REACTIONS (7)
  - Blood glucose decreased [Unknown]
  - Diabetic coma [Unknown]
  - Extra dose administered [Unknown]
  - Hypertension [Unknown]
  - Arthritis [Unknown]
  - Illness [Unknown]
  - Product dispensing error [Unknown]
